FAERS Safety Report 8430506-X (Version None)
Quarter: 2012Q2

REPORT INFORMATION
  Report Type: 
  Country: None (occurrence: None)
  Receive Date: 20120612
  Receipt Date: 20120601
  Transmission Date: 20120825
  Serious: Yes (Hospitalization)
  Sender: FDA-Public Use
  Company Number: CA-JNJFOC-20120602735

PATIENT
  Sex: Female
  Weight: 70 kg

DRUGS (13)
  1. FOLIC ACID [Concomitant]
     Indication: RHEUMATOID ARTHRITIS
     Route: 048
  2. PREGABALIN [Concomitant]
     Indication: PAIN
     Route: 048
  3. AMITRIPTYLINE HCL [Concomitant]
     Indication: SEDATION
     Route: 065
  4. HYDROCHLOROTHIAZIDE [Concomitant]
     Indication: HYPERTENSION
     Route: 065
  5. PREDNISONE [Concomitant]
     Indication: RHEUMATOID ARTHRITIS
     Dosage: ALTERNATE DAYS
     Route: 048
  6. SYNTHROID [Concomitant]
     Indication: THYROID DISORDER
     Route: 065
  7. CEPHALEXIN [Concomitant]
     Indication: ARTHRITIS BACTERIAL
     Route: 048
  8. REMICADE [Suspect]
     Indication: RHEUMATOID ARTHRITIS
     Route: 042
     Dates: start: 20081218
  9. METHOTREXATE [Concomitant]
     Indication: RHEUMATOID ARTHRITIS
     Route: 058
  10. PREDNISONE [Concomitant]
     Route: 048
  11. REMICADE [Suspect]
     Route: 042
     Dates: start: 20110315, end: 20110315
  12. OXYCODONE HCL [Concomitant]
     Indication: PAIN
     Route: 048
  13. ACEBUTOLOL [Concomitant]
     Indication: CARDIAC DISORDER
     Dosage: ONCE IN A DAY
     Route: 048

REACTIONS (2)
  - HYPOKALAEMIA [None]
  - GASTROENTERITIS VIRAL [None]
